FAERS Safety Report 19610939 (Version 1)
Quarter: 2021Q3

REPORT INFORMATION
  Report Type: Report from Study
  Country: US (occurrence: US)
  Receive Date: 20210726
  Receipt Date: 20210726
  Transmission Date: 20211014
  Serious: Yes (Other)
  Sender: FDA-Public Use
  Company Number: US-TEVA-2021-US-1934892

PATIENT
  Age: 43 Year
  Sex: Male

DRUGS (1)
  1. COPAXONE [Suspect]
     Active Substance: GLATIRAMER ACETATE
     Route: 065
     Dates: end: 202104

REACTIONS (12)
  - Injection site atrophy [Unknown]
  - Injection site induration [Unknown]
  - Injection site haematoma [Unknown]
  - Wound infection [Unknown]
  - Injection site scar [Unknown]
  - Fatigue [Recovering/Resolving]
  - Injection site warmth [Unknown]
  - Injection site scab [Unknown]
  - Administration site wound [Unknown]
  - Injection site vesicles [Unknown]
  - Injection site bruising [Unknown]
  - Injection site pain [Unknown]

NARRATIVE: CASE EVENT DATE: 2021
